FAERS Safety Report 7269371-5 (Version None)
Quarter: 2011Q1

REPORT INFORMATION
  Report Type: 
  Country: None (occurrence: None)
  Receive Date: 20110202
  Receipt Date: 20110126
  Transmission Date: 20110831
  Serious: Yes (Hospitalization)
  Sender: FDA-Public Use
  Company Number: US-BRISTOL-MYERS SQUIBB COMPANY-15414493

PATIENT
  Age: 75 Year
  Sex: Female

DRUGS (7)
  1. NOVOLOG [Suspect]
     Indication: TYPE 2 DIABETES MELLITUS
  2. LEVEMIR [Suspect]
     Indication: TYPE 2 DIABETES MELLITUS
  3. ASPIRIN [Concomitant]
  4. BLINDED: SAXAGLIPTIN [Suspect]
     Indication: TYPE 2 DIABETES MELLITUS
     Dates: start: 20100813
  5. NITRATES [Concomitant]
  6. METFORMIN HCL [Suspect]
     Indication: TYPE 2 DIABETES MELLITUS
     Dates: end: 20101030
  7. BLINDED: PLACEBO [Suspect]
     Indication: TYPE 2 DIABETES MELLITUS
     Dates: start: 20100813

REACTIONS (7)
  - PNEUMONIA [None]
  - MENTAL STATUS CHANGES [None]
  - ACUTE PULMONARY OEDEMA [None]
  - COGNITIVE DISORDER [None]
  - BRONCHITIS [None]
  - DELIRIUM [None]
  - MENTAL IMPAIRMENT [None]
